FAERS Safety Report 8988749 (Version 1)
Quarter: 2012Q4

REPORT INFORMATION
  Report Type: Spontaneous
  Country: US (occurrence: None)
  Receive Date: 20121224
  Receipt Date: 20121224
  Transmission Date: 20130627
  Serious: Yes (Hospitalization)
  Sender: FDA-Public Use
  Company Number: None

PATIENT
  Age: 84 Year
  Sex: Female
  Weight: 81.6 kg

DRUGS (1)
  1. COUMADIN [Suspect]

REACTIONS (4)
  - Hypotension [None]
  - Gastrointestinal haemorrhage [None]
  - Prothrombin time prolonged [None]
  - International normalised ratio increased [None]
